FAERS Safety Report 8155170-9 (Version None)
Quarter: 2012Q1

REPORT INFORMATION
  Report Type: 
  Country: None (occurrence: None)
  Receive Date: 20120221
  Receipt Date: 20120213
  Transmission Date: 20120608
  Serious: Yes (Hospitalization, Disabling, Other)
  Sender: FDA-Public Use
  Company Number: BR-ASTRAZENECA-2011SE63448

PATIENT
  Age: 76 Year
  Sex: Female
  Weight: 60 kg

DRUGS (6)
  1. DIOVAN FIX [Concomitant]
     Indication: HYPERTENSION
     Dosage: 320/10MG
     Route: 048
     Dates: start: 20010101
  2. INDAPEN [Concomitant]
     Route: 048
  3. CRESTOR [Suspect]
     Indication: HYPERCHOLESTEROLAEMIA
     Route: 048
     Dates: start: 20050101, end: 20111001
  4. ASPIRIN PREVENT [Concomitant]
     Indication: CAROTID ARTERY DISEASE
     Route: 048
     Dates: start: 20010101
  5. INDAPEN [Concomitant]
     Indication: HYPERTENSION
     Route: 048
     Dates: start: 20050101
  6. CRESTOR [Suspect]
     Route: 048
     Dates: start: 20111001

REACTIONS (8)
  - INTERVERTEBRAL DISC PROTRUSION [None]
  - GAIT DISTURBANCE [None]
  - PAIN IN EXTREMITY [None]
  - BLOOD CHOLESTEROL INCREASED [None]
  - DIZZINESS [None]
  - DRUG INEFFECTIVE [None]
  - CONDITION AGGRAVATED [None]
  - NOSOCOMIAL INFECTION [None]
